FAERS Safety Report 8152558 (Version 2)
Quarter: 2013Q2

REPORT INFORMATION
  Report Type: Spontaneous
  Country: US (occurrence: US)
  Receive Date: 20110922
  Receipt Date: 20130408
  Transmission Date: 20140414
  Serious: Yes (Other)
  Sender: FDA-Public Use
  Company Number: US-ASTRAZENECA-2011SE12635

PATIENT
  Age: 40 Year
  Sex: Female

DRUGS (7)
  1. SEROQUEL [Suspect]
     Route: 048
     Dates: start: 20030114
  2. SEROQUEL [Suspect]
     Route: 048
     Dates: start: 20040107
  3. SEROQUEL [Suspect]
     Route: 048
  4. DEPAKOTE [Concomitant]
     Dates: start: 20030821
  5. DEPAKOTE [Concomitant]
  6. LEXAPRO [Concomitant]
     Indication: MANIA
     Dates: start: 20030905
  7. BENADRYL [Concomitant]
     Dates: start: 20031006

REACTIONS (3)
  - Pancreatitis [Unknown]
  - Diabetic coma [Unknown]
  - Type 2 diabetes mellitus [Unknown]
